FAERS Safety Report 18195154 (Version 1)
Quarter: 2020Q3

REPORT INFORMATION
  Report Type: Spontaneous
  Country: CN (occurrence: CN)
  Receive Date: 20200825
  Receipt Date: 20200825
  Transmission Date: 20201104
  Serious: Yes (Other)
  Sender: FDA-Public Use
  Company Number: CN-ELI_LILLY_AND_COMPANY-CN202008005806

PATIENT
  Age: 71 Year
  Sex: Female
  Weight: 62.5 kg

DRUGS (4)
  1. GASTRODIN. [Suspect]
     Active Substance: GASTRODIN
     Indication: VERTEBROBASILAR INSUFFICIENCY
     Dosage: 0.6 G, DAILY
     Route: 042
     Dates: start: 20200709, end: 20200730
  2. CITICOLINE SODIUM [Suspect]
     Active Substance: CITICOLINE SODIUM
     Indication: VERTEBROBASILAR INSUFFICIENCY
     Dosage: 0.5 G, DAILY
     Route: 042
     Dates: start: 20200709, end: 20200730
  3. LORAZEPAM. [Suspect]
     Active Substance: LORAZEPAM
     Indication: ANXIETY
     Dosage: 0.5 MG, DAILY
     Route: 048
     Dates: start: 20200727, end: 20200728
  4. CYMBALTA [Suspect]
     Active Substance: DULOXETINE HYDROCHLORIDE
     Indication: ANXIETY
     Dosage: 30 MG, DAILY
     Route: 048
     Dates: start: 20200727, end: 20200727

REACTIONS (9)
  - Hypophagia [Recovered/Resolved]
  - Muscle spasms [Recovered/Resolved]
  - Hypoaesthesia [Recovered/Resolved]
  - Decreased appetite [Recovered/Resolved]
  - Cardiac flutter [Recovered/Resolved]
  - Dyspnoea [Recovered/Resolved]
  - Diarrhoea [Recovered/Resolved]
  - Nausea [Recovered/Resolved]
  - Abdominal pain [Recovered/Resolved]

NARRATIVE: CASE EVENT DATE: 20200727
